FAERS Safety Report 20942394 (Version 4)
Quarter: 2022Q3

REPORT INFORMATION
  Report Type: Spontaneous
  Country: US (occurrence: US)
  Receive Date: 20220610
  Receipt Date: 20220704
  Transmission Date: 20221027
  Serious: No
  Sender: FDA-Public Use
  Company Number: US-ORGANON-O2206USA000622

PATIENT
  Sex: Female
  Weight: 65.3 kg

DRUGS (1)
  1. NEXPLANON [Suspect]
     Active Substance: ETONOGESTREL
     Indication: Contraception
     Dosage: 1 IMPLANT OF 68 MG, ONCE, LEFT UPPER ARM OVER TRICEPS MUSCLE
     Route: 059
     Dates: start: 20211222, end: 20220601

REACTIONS (2)
  - Device breakage [Recovered/Resolved]
  - No adverse event [Unknown]
